FAERS Safety Report 10672542 (Version 1)
Quarter: 2014Q4

REPORT INFORMATION
  Report Type: Spontaneous
  Country: GR (occurrence: GR)
  Receive Date: 20141223
  Receipt Date: 20141223
  Transmission Date: 20150529
  Serious: Yes (Other)
  Sender: FDA-Public Use
  Company Number: GR-009507513-1412GRC008352

PATIENT
  Age: 69 Year
  Sex: Male

DRUGS (6)
  1. LOPINAVIR (+) RITONAVIR [Suspect]
     Active Substance: LOPINAVIR\RITONAVIR
     Indication: EVIDENCE BASED TREATMENT
     Dosage: 400/100 MG, INITIATED ON DAY 13 OF ILLNESS
     Route: 048
     Dates: start: 20140421, end: 20140430
  2. RIBAVIRIN. [Suspect]
     Active Substance: RIBAVIRIN
     Indication: EVIDENCE BASED TREATMENT
     Dosage: 2000 MG LOADING DOSE
     Route: 048
     Dates: start: 20140421, end: 20140428
  3. PEGINTRON [Suspect]
     Active Substance: PEGINTERFERON ALFA-2B
     Indication: MIDDLE EAST RESPIRATORY SYNDROME
  4. RIBAVIRIN. [Suspect]
     Active Substance: RIBAVIRIN
     Indication: MIDDLE EAST RESPIRATORY SYNDROME
     Dosage: 1200 MG EVERY 8 HOURS
     Route: 048
  5. LOPINAVIR (+) RITONAVIR [Suspect]
     Active Substance: LOPINAVIR\RITONAVIR
     Indication: MIDDLE EAST RESPIRATORY SYNDROME
  6. PEGINTRON [Suspect]
     Active Substance: PEGINTERFERON ALFA-2B
     Indication: EVIDENCE BASED TREATMENT
     Dosage: 180 MICROGRAM, QW
     Route: 058
     Dates: start: 20140421

REACTIONS (6)
  - Drug-induced liver injury [Unknown]
  - Intentional product use issue [Unknown]
  - Hyperbilirubinaemia [Unknown]
  - Acute kidney injury [Not Recovered/Not Resolved]
  - Jaundice [Unknown]
  - Renal failure [Unknown]

NARRATIVE: CASE EVENT DATE: 201404
